FAERS Safety Report 7639465-0 (Version None)
Quarter: 2011Q3

REPORT INFORMATION
  Report Type: 
  Country: None (occurrence: None)
  Receive Date: 20110727
  Receipt Date: 20110725
  Transmission Date: 20111222
  Serious: Yes (Other)
  Sender: FDA-Public Use
  Company Number: EC-GLAXOSMITHKLINE-A0931798A

PATIENT
  Sex: Female
  Weight: 58.2 kg

DRUGS (1)
  1. PAXIL [Suspect]
     Indication: DEPRESSION
     Dosage: 20MG PER DAY
     Route: 065

REACTIONS (2)
  - TACHYCARDIA [None]
  - WEIGHT INCREASED [None]
